FAERS Safety Report 9370704 (Version 1)
Quarter: 2013Q2

REPORT INFORMATION
  Report Type: Spontaneous
  Country: US (occurrence: US)
  Receive Date: 20130626
  Receipt Date: 20130626
  Transmission Date: 20140414
  Serious: No
  Sender: FDA-Public Use
  Company Number: US-BAUSCH-BL-2013-000592

PATIENT
  Age: 52 Year
  Sex: Female

DRUGS (1)
  1. GENTAMICIN SULFATE OPHTHALMIC SOLUTION USP 0.3% [Suspect]
     Indication: PRODUCT USED FOR UNKNOWN INDICATION
     Dosage: 2 DROPS; THREE TIMES A DAY; OPHTHALMIC
     Route: 047
     Dates: start: 20130206, end: 20130210

REACTIONS (4)
  - Eye pruritus [Recovered/Resolved]
  - Condition aggravated [Recovered/Resolved]
  - Eye irritation [Recovered/Resolved]
  - Headache [Recovered/Resolved]
